FAERS Safety Report 12471974 (Version 5)
Quarter: 2017Q2

REPORT INFORMATION
  Report Type: Report from Study
  Country: BR (occurrence: BR)
  Receive Date: 20160616
  Receipt Date: 20170404
  Transmission Date: 20170830
  Serious: Yes (Hospitalization, Other)
  Sender: FDA-Public Use
  Company Number: PHHY2016BR081237

PATIENT
  Age: 23 Year
  Sex: Female
  Weight: 57 kg

DRUGS (4)
  1. PANTOPRAZOLE [Concomitant]
     Active Substance: PANTOPRAZOLE
     Indication: DYSPEPSIA
     Dosage: 1 DF, QD
     Route: 048
  2. EXJADE [Suspect]
     Active Substance: DEFERASIROX
     Indication: THALASSAEMIA BETA
  3. NOVALGINA [Concomitant]
     Active Substance: METAMIZOLE SODIUM
     Indication: PRODUCT USED FOR UNKNOWN INDICATION
     Dosage: 3 DF, QD
     Route: 048
  4. EXJADE [Suspect]
     Active Substance: DEFERASIROX
     Indication: THALASSAEMIA
     Dosage: 1500 MG (3 DF OF 500 MG, 25 MG/KG), QD
     Route: 048
     Dates: start: 2012

REACTIONS (10)
  - Bone marrow failure [Unknown]
  - Anaemia [Not Recovered/Not Resolved]
  - Asthenia [Recovering/Resolving]
  - Influenza [Unknown]
  - Red blood cell count decreased [Unknown]
  - Serum ferritin increased [Unknown]
  - Dyspepsia [Unknown]
  - Malaise [Unknown]
  - Pyrexia [Unknown]
  - Haemoglobin decreased [Not Recovered/Not Resolved]

NARRATIVE: CASE EVENT DATE: 201605
